FAERS Safety Report 13350144 (Version 4)
Quarter: 2023Q1

REPORT INFORMATION
  Report Type: Report from Study
  Country: IN (occurrence: IN)
  Receive Date: 20170320
  Receipt Date: 20230222
  Transmission Date: 20230418
  Serious: Yes (Hospitalization)
  Sender: FDA-Public Use
  Company Number: IN-002147023-PHHY2017IN040199

PATIENT

DRUGS (4)
  1. RUXOLITINIB [Suspect]
     Active Substance: RUXOLITINIB
     Indication: Primary myelofibrosis
     Dosage: 5 MG, TIW
     Route: 048
     Dates: start: 20160225, end: 20220610
  2. RUXOLITINIB [Suspect]
     Active Substance: RUXOLITINIB
     Dosage: 5 MG, QD
     Route: 048
     Dates: start: 20170128
  3. RUXOLITINIB [Suspect]
     Active Substance: RUXOLITINIB
     Dosage: 5 MG AFTER DIALYSIS AND DAY AFTER DIALYSIS (DIALYSIS THRICE IN A WEEK)
     Route: 065
     Dates: start: 20220718
  4. RUXOLITINIB [Suspect]
     Active Substance: RUXOLITINIB
     Dosage: 5 MG AFTER DIALYSIS AND DAY AFTER DIALYSIS (DIALYSIS THRICE IN A WEEK)
     Route: 065
     Dates: start: 20230208

REACTIONS (7)
  - Hyperchlorhydria [Not Recovered/Not Resolved]
  - Renal impairment [Not Recovered/Not Resolved]
  - Pain [Not Recovered/Not Resolved]
  - Anaemia [Not Recovered/Not Resolved]
  - Fatigue [Not Recovered/Not Resolved]
  - Product use issue [Not Recovered/Not Resolved]
  - Hypotension [Not Recovered/Not Resolved]

NARRATIVE: CASE EVENT DATE: 20170128
